FAERS Safety Report 8643791 (Version 5)
Quarter: 2012Q4

REPORT INFORMATION
  Report Type: 
  Country: US (occurrence: US)
  Receive Date: 20120629
  Receipt Date: 20121116
  Transmission Date: 20130627
  Serious: Yes (Hospitalization)
  Sender: FDA-Public Use
  Company Number: US-PFIZER INC-2012146596

PATIENT
  Age: 80 Year
  Sex: Male
  Weight: 65.7 kg

DRUGS (13)
  1. CISPLATIN [Suspect]
     Indication: NON-HODGKIN^S LYMPHOMA
     Dosage: 93 mg, UNK
     Route: 042
     Dates: start: 20120307, end: 20120530
  2. GEMCITABINE HYDROCHLORIDE [Suspect]
     Indication: NON-HODGKIN^S LYMPHOMA
     Dosage: 930 mg, UNK
     Route: 042
     Dates: start: 20120307, end: 20120530
  3. INOTUZUMAB OZOGAMICIN [Suspect]
     Indication: NON-HODGKIN^S LYMPHOMA
     Dosage: 1.49 mg, (4 mg /vial kit)
     Route: 042
     Dates: start: 20120307, end: 20120531
  4. RITUXIMAB [Suspect]
     Indication: NON-HODGKIN^S LYMPHOMA
     Dosage: 697.5 mg, UNK
     Route: 042
     Dates: start: 20120307, end: 20120530
  5. DEXAMETHASONE ACETATE [Suspect]
     Indication: NON-HODGKIN^S LYMPHOMA
     Dosage: 40 mg, UNK
     Route: 048
     Dates: start: 20120307, end: 20120530
  6. ALLOPURINOL [Concomitant]
     Dosage: 100 mg, UNK
  7. ACETYLSALICYLIC ACID [Concomitant]
     Dosage: 81 mg, UNK
  8. VITAMIN B COMPLEX [Concomitant]
     Dosage: UNK
  9. EZETIMIBE [Concomitant]
     Dosage: 10 mg, UNK
  10. GABAPENTIN [Concomitant]
     Dosage: 300 mg, UNK
  11. HYDROCHLOROTHIAZIDE [Concomitant]
     Dosage: 25 mg, UNK
  12. OMEPRAZOLE [Concomitant]
     Dosage: 10 mg, UNK
  13. RAMIPRIL [Concomitant]
     Dosage: 10 mg, UNK

REACTIONS (3)
  - Oedema peripheral [Not Recovered/Not Resolved]
  - Body temperature increased [Not Recovered/Not Resolved]
  - Thrombosis [Not Recovered/Not Resolved]
